FAERS Safety Report 6274972-7 (Version None)
Quarter: 2009Q3

REPORT INFORMATION
  Report Type: 
  Country: None (occurrence: None)
  Receive Date: 20090717
  Receipt Date: 20090702
  Transmission Date: 20100115
  Serious: Yes (Life-Threatening, Hospitalization, Other)
  Sender: FDA-Public Use
  Company Number: 1000007375

PATIENT
  Age: 48 Year
  Sex: Female

DRUGS (2)
  1. CITALOPRAM HYDROBROMIDE [Suspect]
     Indication: MAJOR DEPRESSION
     Dosage: 40 MG (40 MG, 1 IN 1 D)
  2. FUROSEMIDE [Suspect]

REACTIONS (9)
  - BLOOD CHLORIDE DECREASED [None]
  - BLOOD POTASSIUM DECREASED [None]
  - DIARRHOEA [None]
  - ELECTROCARDIOGRAM QT PROLONGED [None]
  - ELECTROCARDIOGRAM ST-T SEGMENT DEPRESSION [None]
  - INFLUENZA LIKE ILLNESS [None]
  - SYNCOPE [None]
  - TORSADE DE POINTES [None]
  - VENTRICULAR TACHYCARDIA [None]
